FAERS Safety Report 4991417-5 (Version None)
Quarter: 2006Q2

REPORT INFORMATION
  Report Type: 
  Country: None (occurrence: None)
  Receive Date: 20060502
  Receipt Date: 20060420
  Transmission Date: 20061013
  Serious: Yes (Life-Threatening)
  Sender: FDA-Public Use
  Company Number: 2006-141624-NL

PATIENT
  Age: 55 Year
  Sex: Male

DRUGS (8)
  1. VECURONIUM BROMIDE [Suspect]
     Indication: LIFE SUPPORT
     Dosage: 2.5 MG Q1HR INTRAVENOUS DRIP
     Route: 041
     Dates: start: 20060328, end: 20060406
  2. METHYLPREDNISOLONE SODIUM SUCCINATE [Suspect]
     Indication: ACUTE RESPIRATORY DISTRESS SYNDROME
     Dosage: INTRAVENOUS DRIP
     Route: 041
     Dates: start: 20060328, end: 20060430
  3. BACTRIM [Concomitant]
  4. AMPHOTERICIN B [Concomitant]
  5. VANCOMYCIN HYDROCHLORIDE [Concomitant]
  6. FINIBEX [Concomitant]
  7. CIPROFLOXACIN HYDROCHLORIDE [Concomitant]
  8. CEFOZOPRAN HYDROCHLORIDE [Concomitant]

REACTIONS (2)
  - MUSCLE ATROPHY [None]
  - MYOPATHY [None]
